APPROVED DRUG PRODUCT: AMCINONIDE
Active Ingredient: AMCINONIDE
Strength: 0.1%
Dosage Form/Route: CREAM;TOPICAL
Application: A076065 | Product #001 | TE Code: AB
Applicant: GENUS LIFE SCIENCES INC
Approved: May 15, 2003 | RLD: No | RS: Yes | Type: RX